FAERS Safety Report 17474665 (Version 2)
Quarter: 2020Q1

REPORT INFORMATION
  Report Type: Spontaneous
  Country: JP (occurrence: JP)
  Receive Date: 20200228
  Receipt Date: 20200304
  Transmission Date: 20200409
  Serious: Yes (Other)
  Sender: FDA-Public Use
  Company Number: JP-ASTRAZENECA-2020SE23342

PATIENT
  Age: 69 Year
  Sex: Female

DRUGS (11)
  1. SULFAMETHOXAZOLE/TRIMETHOPRIM [Concomitant]
     Active Substance: SULFAMETHOXAZOLE\TRIMETHOPRIM
     Dosage: DOSE UNKNOWN
     Route: 065
  2. MAGNESIUM OXIDE. [Concomitant]
     Active Substance: MAGNESIUM OXIDE
     Dosage: DOSE UNKNOWN
     Route: 065
  3. NEXIUM [Suspect]
     Active Substance: ESOMEPRAZOLE MAGNESIUM
     Indication: GASTRIC ULCER
     Route: 048
  4. ETANERCEPT [Concomitant]
     Active Substance: ETANERCEPT
     Dosage: DOSE UNKNOWN
     Route: 065
  5. PREDNISOLONE. [Concomitant]
     Active Substance: PREDNISOLONE
     Indication: RHEUMATOID ARTHRITIS
  6. EZETIMIBE. [Concomitant]
     Active Substance: EZETIMIBE
     Dosage: DOSE UNKNOWN
     Route: 065
  7. PIRFENIDONE. [Concomitant]
     Active Substance: PIRFENIDONE
     Dosage: DOSE UNKNOWN
     Route: 065
  8. SODIUM RISEDRONATE HYDRATE [Concomitant]
     Active Substance: RISEDRONATE SODIUM HEMI-PENTAHYDRATE
     Dosage: DOSE UNKNOWN
     Route: 065
  9. METHYLPREDNISOLONE. [Suspect]
     Active Substance: METHYLPREDNISOLONE
     Dosage: DOSE UNKNOWN
     Route: 065
  10. IGURATIMOD [Concomitant]
     Active Substance: IGURATIMOD
     Dosage: DOSE UNKNOWN
     Route: 065
  11. LOSARTAN POTASSIUM. [Concomitant]
     Active Substance: LOSARTAN POTASSIUM
     Dosage: DOSE UNKNOWN
     Route: 065

REACTIONS (2)
  - Hip fracture [Recovering/Resolving]
  - Fall [Unknown]

NARRATIVE: CASE EVENT DATE: 20200127
